FAERS Safety Report 8077586-1 (Version None)
Quarter: 2012Q1

REPORT INFORMATION
  Report Type: 
  Country: None (occurrence: None)
  Receive Date: 20120127
  Receipt Date: 20120117
  Transmission Date: 20120608
  Serious: Yes (Other)
  Sender: FDA-Public Use
  Company Number: US-CELGENEUS-163-20785-11123592

PATIENT
  Sex: Male
  Weight: 48.85 kg

DRUGS (5)
  1. ALKERAN [Concomitant]
     Route: 065
     Dates: start: 20090801, end: 20100701
  2. PREDNISONE TAB [Concomitant]
     Route: 065
     Dates: start: 20090801, end: 20100701
  3. THALOMID [Suspect]
     Indication: MULTIPLE MYELOMA
     Dosage: 50 MILLIGRAM
     Route: 048
     Dates: start: 20090701
  4. THALOMID [Suspect]
     Dosage: 100 MILLIGRAM
     Route: 048
     Dates: start: 20091101
  5. AREDIA [Concomitant]
     Route: 065
     Dates: start: 20090801

REACTIONS (9)
  - PULMONARY FIBROSIS [None]
  - MULTIPLE MYELOMA [None]
  - HAEMATOCRIT DECREASED [None]
  - BONE LESION [None]
  - NEOPLASM PROGRESSION [None]
  - HAEMOGLOBIN DECREASED [None]
  - WEIGHT DECREASED [None]
  - ABDOMINAL DISCOMFORT [None]
  - EMPHYSEMA [None]
